FAERS Safety Report 23633824 (Version 3)
Quarter: 2024Q1

REPORT INFORMATION
  Report Type: Spontaneous
  Country: US (occurrence: US)
  Receive Date: 20240314
  Receipt Date: 20240326
  Transmission Date: 20240410
  Serious: No
  Sender: FDA-Public Use
  Company Number: US-PFIZER INC-PV202400035279

PATIENT
  Age: 44 Year
  Sex: Female

DRUGS (2)
  1. XELJANZ XR [Interacting]
     Active Substance: TOFACITINIB CITRATE
  2. CELLCEPT [Interacting]
     Active Substance: MYCOPHENOLATE MOFETIL

REACTIONS (1)
  - Drug interaction [Unknown]
